FAERS Safety Report 4828688-1 (Version None)
Quarter: 2005Q4

REPORT INFORMATION
  Report Type: 
  Country: None (occurrence: None)
  Receive Date: 20051115
  Receipt Date: 20051113
  Transmission Date: 20060501
  Serious: Yes (Life-Threatening, Hospitalization)
  Sender: FDA-Public Use
  Company Number: PHNU2005DE03743

PATIENT
  Sex: Female

DRUGS (4)
  1. LEPONEX [Suspect]
     Route: 048
     Dates: start: 20051112, end: 20051112
  2. LORAZEPAM [Suspect]
     Route: 048
     Dates: start: 20051112, end: 20051112
  3. DIGITALIS GLYCOSIDES [Suspect]
     Route: 048
     Dates: start: 20051112, end: 20051112
  4. THEOPHYLLINE [Suspect]
     Route: 048
     Dates: start: 20051112, end: 20051112

REACTIONS (4)
  - EXTUBATION [None]
  - INTENTIONAL DRUG MISUSE [None]
  - RESPIRATORY DEPRESSION [None]
  - SUICIDE ATTEMPT [None]
